FAERS Safety Report 10005898 (Version 1)
Quarter: 2014Q1

REPORT INFORMATION
  Report Type: Spontaneous
  Country: US (occurrence: US)
  Receive Date: 20140312
  Receipt Date: 20140312
  Transmission Date: 20141002
  Serious: Yes (Hospitalization, Other)
  Sender: FDA-Public Use
  Company Number: 2014SP001388

PATIENT
  Age: 69 Year
  Sex: Male

DRUGS (4)
  1. OXALIPLATIN [Suspect]
     Indication: RECTAL CANCER
  2. FOLINIC ACID [Suspect]
     Indication: RECTAL CANCER
  3. FLUOROURACIL [Suspect]
     Indication: RECTAL CANCER
  4. BEVACIZUMAB [Suspect]
     Indication: RECTAL CANCER

REACTIONS (1)
  - Angina pectoris [Unknown]
